FAERS Safety Report 15679009 (Version 1)
Quarter: 2018Q4

REPORT INFORMATION
  Report Type: Report from Study
  Country: None (occurrence: US)
  Receive Date: 20181202
  Receipt Date: 20181202
  Transmission Date: 20190205
  Serious: Yes (Hospitalization, Other)
  Sender: FDA-Public Use
  Company Number: US-ABBVIE-18K-163-2569005-00

PATIENT
  Age: 60 Year
  Sex: Male
  Weight: 80.36 kg

DRUGS (7)
  1. HUMIRA [Suspect]
     Active Substance: ADALIMUMAB
     Route: 058
     Dates: start: 201805
  2. LISINOPRIL. [Concomitant]
     Active Substance: LISINOPRIL
     Indication: HYPERTENSION
  3. PANTOPRAZOLE [Concomitant]
     Active Substance: PANTOPRAZOLE
     Indication: GASTROOESOPHAGEAL REFLUX DISEASE
  4. VITAMIN D2 [Concomitant]
     Active Substance: ERGOCALCIFEROL
     Indication: VITAMIN SUPPLEMENTATION
  5. HUMIRA [Suspect]
     Active Substance: ADALIMUMAB
     Indication: CROHN^S DISEASE
     Route: 058
     Dates: start: 2010, end: 201803
  6. FOLIC ACID. [Concomitant]
     Active Substance: FOLIC ACID
     Indication: VITAMIN SUPPLEMENTATION
  7. MONTELUKAST [Concomitant]
     Active Substance: MONTELUKAST SODIUM
     Indication: HYPERSENSITIVITY

REACTIONS (5)
  - Sinusitis [Recovered/Resolved]
  - Herpes zoster [Recovered/Resolved]
  - Dehydration [Recovered/Resolved]
  - Swelling face [Recovered/Resolved]
  - Paranasal sinus injury [Not Recovered/Not Resolved]

NARRATIVE: CASE EVENT DATE: 201802
